FAERS Safety Report 12995926 (Version 4)
Quarter: 2018Q1

REPORT INFORMATION
  Report Type: Report from Study
  Country: US (occurrence: US)
  Receive Date: 20161202
  Receipt Date: 20180321
  Transmission Date: 20180508
  Serious: Yes (Hospitalization)
  Sender: FDA-Public Use
  Company Number: US-ACTELION-A-NJ2015-116191

PATIENT
  Age: 4 Year
  Sex: Female
  Weight: 17.23 kg

DRUGS (11)
  1. NACL [Concomitant]
     Active Substance: SODIUM CHLORIDE
  2. TRACLEER [Suspect]
     Active Substance: BOSENTAN
     Dosage: 8.5 MG, BID
     Route: 048
     Dates: start: 20150514
  3. TRACLEER [Suspect]
     Active Substance: BOSENTAN
     Dosage: 24 MG, BID
     Route: 048
     Dates: start: 20140506
  4. TRACLEER [Suspect]
     Active Substance: BOSENTAN
     Dosage: 31.25 MG, BID
     Route: 048
  5. XOPENEX [Concomitant]
     Active Substance: LEVALBUTEROL HYDROCHLORIDE
  6. ASPIRIN. [Concomitant]
     Active Substance: ASPIRIN
  7. REMODULIN [Concomitant]
     Active Substance: TREPROSTINIL
     Dosage: 96 NG/KG, PER MIN
     Route: 058
     Dates: start: 2014
  8. ADCIRCA [Concomitant]
     Active Substance: TADALAFIL
  9. REVATIO [Concomitant]
     Active Substance: SILDENAFIL CITRATE
     Dosage: 10 MG, TID
     Dates: start: 2014
  10. ZANTAC [Concomitant]
     Active Substance: RANITIDINE HYDROCHLORIDE
  11. TRACLEER [Suspect]
     Active Substance: BOSENTAN
     Indication: PULMONARY ARTERIAL HYPERTENSION
     Dosage: 62.5 MG, BID
     Route: 048
     Dates: start: 20150113

REACTIONS (10)
  - Pneumonia [Unknown]
  - Viral infection [Unknown]
  - Influenza [Unknown]
  - Alanine aminotransferase increased [Recovered/Resolved]
  - Hypoxia [Recovered/Resolved]
  - Respiratory syncytial virus infection [Unknown]
  - Pulmonary artery stenosis [Unknown]
  - Acute respiratory failure [Recovered/Resolved]
  - Bronchitis [Recovered/Resolved]
  - Liver function test increased [Recovered/Resolved]
